FAERS Safety Report 16297622 (Version 2)
Quarter: 2019Q2

REPORT INFORMATION
  Report Type: Report from Study
  Country: None (occurrence: US)
  Receive Date: 20190510
  Receipt Date: 20190625
  Transmission Date: 20190711
  Serious: Yes (Other)
  Sender: FDA-Public Use
  Company Number: US-ABBVIE-19S-163-2775776-00

PATIENT
  Sex: Male
  Weight: 49.49 kg

DRUGS (1)
  1. ANDROGEL [Suspect]
     Active Substance: TESTOSTERONE
     Indication: PRODUCT USED FOR UNKNOWN INDICATION
     Route: 061

REACTIONS (12)
  - Restless legs syndrome [Unknown]
  - Androgen deficiency [Unknown]
  - Pancreatitis chronic [Unknown]
  - Spondylolisthesis [Unknown]
  - Hyperlipidaemia [Unknown]
  - Anxiety [Unknown]
  - Gastrooesophageal reflux disease [Unknown]
  - Erectile dysfunction [Unknown]
  - Rheumatoid arthritis [Unknown]
  - Major depression [Unknown]
  - Drug dependence [Unknown]
  - Essential hypertension [Unknown]
